FAERS Safety Report 19655590 (Version 2)
Quarter: 2021Q3

REPORT INFORMATION
  Report Type: Spontaneous
  Country: SK (occurrence: SK)
  Receive Date: 20210804
  Receipt Date: 20210806
  Transmission Date: 20211014
  Serious: Yes (Other)
  Sender: FDA-Public Use
  Company Number: NVSC2021SK172968

PATIENT
  Age: 66 Year
  Sex: Male

DRUGS (1)
  1. DOCETAXEL. [Suspect]
     Active Substance: DOCETAXEL
     Indication: SKIN ANGIOSARCOMA
     Dosage: UNK, UNKNOWN
     Route: 065
     Dates: start: 201903

REACTIONS (8)
  - Pulmonary oedema [Unknown]
  - Leukopenia [Unknown]
  - Neutropenia [Unknown]
  - Pulmonary alveolar haemorrhage [Unknown]
  - Anaemia [Unknown]
  - Condition aggravated [Unknown]
  - Thrombocytopenia [Unknown]
  - Haemoptysis [Unknown]

NARRATIVE: CASE EVENT DATE: 201904
